FAERS Safety Report 17088155 (Version 2)
Quarter: 2020Q1

REPORT INFORMATION
  Report Type: Spontaneous
  Country: JP (occurrence: JP)
  Receive Date: 20191128
  Receipt Date: 20200122
  Transmission Date: 20200409
  Serious: Yes (Other)
  Sender: FDA-Public Use
  Company Number: JP-PFIZER INC-2019510733

PATIENT
  Age: 71 Year
  Sex: Male

DRUGS (7)
  1. REFLEX [Suspect]
     Active Substance: MIRTAZAPINE
     Dosage: 45 MG, UNK
     Dates: start: 20130801
  2. CYMBALTA [Suspect]
     Active Substance: DULOXETINE HYDROCHLORIDE
     Dosage: 20 MG, UNK
     Dates: start: 20130801, end: 20160425
  3. CYMBALTA [Suspect]
     Active Substance: DULOXETINE HYDROCHLORIDE
     Dosage: 20 MG, UNK
     Dates: start: 20130711, end: 20130722
  4. REFLEX [Suspect]
     Active Substance: MIRTAZAPINE
     Dosage: 15 MG, UNK
     Dates: start: 20120920, end: 20121003
  5. REFLEX [Suspect]
     Active Substance: MIRTAZAPINE
     Dosage: 30 MG, UNK
     Dates: start: 20121004, end: 20130730
  6. CYMBALTA [Suspect]
     Active Substance: DULOXETINE HYDROCHLORIDE
     Dosage: 40 MG, UNK
     Dates: start: 20130723, end: 20130730
  7. SOLANAX [Suspect]
     Active Substance: ALPRAZOLAM
     Dosage: 1.2 MG, UNK

REACTIONS (3)
  - Suicide attempt [Unknown]
  - Visual acuity reduced [Unknown]
  - Overdose [Unknown]

NARRATIVE: CASE EVENT DATE: 20160425
